FAERS Safety Report 7561272-8 (Version None)
Quarter: 2011Q2

REPORT INFORMATION
  Report Type: 
  Country: None (occurrence: None)
  Receive Date: 20110621
  Receipt Date: 20110210
  Transmission Date: 20111010
  Serious: No
  Sender: FDA-Public Use
  Company Number: US-ASTRAZENECA-2011SE08008

PATIENT
  Age: 10 Year
  Sex: Male

DRUGS (2)
  1. PULMICORT [Suspect]
     Indication: ASTHMA
     Route: 055
  2. XOPENEX [Suspect]
     Indication: ASTHMA
     Route: 055

REACTIONS (1)
  - OEDEMA PERIPHERAL [None]
